FAERS Safety Report 10786386 (Version 1)
Quarter: 2015Q1

REPORT INFORMATION
  Report Type: Spontaneous
  Country: US (occurrence: US)
  Receive Date: 20150211
  Receipt Date: 20150211
  Transmission Date: 20150721
  Serious: Yes (Death, Hospitalization)
  Sender: FDA-Public Use
  Company Number: US-ASTRAZENECA-2015SE11182

PATIENT
  Sex: Female
  Weight: 11.3 kg

DRUGS (3)
  1. SYNAGIS [Suspect]
     Active Substance: PALIVIZUMAB
     Indication: ANGIOPATHY
     Route: 030
     Dates: start: 201412
  2. SYNAGIS [Suspect]
     Active Substance: PALIVIZUMAB
     Indication: ANGIOPATHY
     Route: 030
     Dates: start: 201411
  3. SYNAGIS [Suspect]
     Active Substance: PALIVIZUMAB
     Indication: ANGIOPATHY
     Route: 030
     Dates: start: 201501

REACTIONS (1)
  - Angiopathy [Fatal]
